FAERS Safety Report 7380364-X (Version None)
Quarter: 2011Q1

REPORT INFORMATION
  Report Type: 
  Country: None (occurrence: None)
  Receive Date: 20110329
  Receipt Date: 20110322
  Transmission Date: 20110831
  Serious: Yes (Other)
  Sender: FDA-Public Use
  Company Number: US-ROCHE-718151

PATIENT
  Sex: Female
  Weight: 63.5 kg

DRUGS (1)
  1. AVASTIN [Suspect]
     Route: 042
     Dates: start: 20100205

REACTIONS (7)
  - MENIERE'S DISEASE [None]
  - EYE PAIN [None]
  - MASTOID EFFUSION [None]
  - VISUAL IMPAIRMENT [None]
  - OCULAR DISCOMFORT [None]
  - HEADACHE [None]
  - PRURITUS [None]
